FAERS Safety Report 7319754-X (Version None)
Quarter: 2011Q1

REPORT INFORMATION
  Report Type: 
  Country: None (occurrence: None)
  Receive Date: 20110228
  Receipt Date: 20100908
  Transmission Date: 20110831
  Serious: No
  Sender: FDA-Public Use
  Company Number: A0880307A

PATIENT
  Age: 53 Year
  Sex: Female

DRUGS (4)
  1. RAMIPRIL [Concomitant]
  2. ADVAIR DISKUS 100/50 [Concomitant]
  3. LAMICTAL [Suspect]
     Dosage: 200MG PER DAY
     Route: 048
     Dates: start: 20100515, end: 20100615
  4. LOVASTATIN [Concomitant]

REACTIONS (5)
  - VOMITING [None]
  - RENAL DISORDER [None]
  - DRUG DISPENSING ERROR [None]
  - DISORIENTATION [None]
  - NAUSEA [None]
